FAERS Safety Report 9162778 (Version 1)
Quarter: 2013Q1

REPORT INFORMATION
  Report Type: Spontaneous
  Country: US (occurrence: None)
  Receive Date: 20130207
  Receipt Date: 20130207
  Transmission Date: 20140127
  Serious: Yes (Life-Threatening)
  Sender: FDA-Public Use
  Company Number: 2013AL000010

PATIENT
  Age: 57 Year
  Sex: Male
  Weight: 60.78 kg

DRUGS (1)
  1. FOLOTYN [Suspect]
     Indication: PERIPHERAL T-CELL LYMPHOMA UNSPECIFIED
     Route: 042
     Dates: start: 20121002, end: 20121226

REACTIONS (2)
  - Peripheral T-cell lymphoma unspecified [None]
  - Malignant neoplasm progression [None]
